FAERS Safety Report 12334567 (Version 3)
Quarter: 2016Q3

REPORT INFORMATION
  Report Type: Spontaneous
  Country: US (occurrence: US)
  Receive Date: 20160504
  Receipt Date: 20160805
  Transmission Date: 20161109
  Serious: No
  Sender: FDA-Public Use
  Company Number: US-BIOMARINAP-US-2016-109697

PATIENT
  Age: 20 Year
  Sex: Female

DRUGS (2)
  1. ALDURAZYME [Suspect]
     Active Substance: LARONIDASE
     Indication: MUCOPOLYSACCHARIDOSIS I
     Dosage: UNK
     Route: 042
     Dates: start: 20160423
  2. ALDURAZYME [Suspect]
     Active Substance: LARONIDASE
     Dosage: 43.5 MG, UNK
     Route: 042
     Dates: start: 200702

REACTIONS (7)
  - Feeling cold [Unknown]
  - Infectious mononucleosis [Unknown]
  - Incorrect dose administered [Unknown]
  - Musculoskeletal stiffness [Recovered/Resolved]
  - Limb deformity [Unknown]
  - Cyst [Unknown]
  - Arthralgia [Unknown]

NARRATIVE: CASE EVENT DATE: 20160418
